FAERS Safety Report 6021058-2 (Version None)
Quarter: 2008Q4

REPORT INFORMATION
  Report Type: 
  Country: None (occurrence: None)
  Receive Date: 20081229
  Receipt Date: 20081219
  Transmission Date: 20090506
  Serious: Yes (Life-Threatening, Hospitalization)
  Sender: FDA-Public Use
  Company Number: CZ-TEVA-182959ISR

PATIENT
  Sex: Female

DRUGS (2)
  1. COPAXONE [Suspect]
     Indication: MULTIPLE SCLEROSIS
     Route: 058
     Dates: start: 20080804, end: 20081218
  2. METHYLPREDNISOLONE 16MG TAB [Concomitant]
     Indication: MULTIPLE SCLEROSIS
     Route: 048

REACTIONS (1)
  - HEPATIC FAILURE [None]
